FAERS Safety Report 6034543-4 (Version None)
Quarter: 2009Q1

REPORT INFORMATION
  Report Type: 
  Country: None (occurrence: None)
  Receive Date: 20090108
  Receipt Date: 20081229
  Transmission Date: 20090719
  Serious: Yes (Other)
  Sender: FDA-Public Use
  Company Number: 236125J08USA

PATIENT
  Age: 58 Year
  Sex: Female

DRUGS (1)
  1. REBIF [Suspect]
     Indication: MULTIPLE SCLEROSIS
     Dosage: 44 MCG, 3 IN 1 , SUBCUTANEOUS
     Route: 058
     Dates: start: 20060509

REACTIONS (6)
  - HEPATITIS [None]
  - INJECTION SITE DISCHARGE [None]
  - INJECTION SITE INFECTION [None]
  - INJECTION SITE SWELLING [None]
  - RENAL DISORDER [None]
  - URINE ODOUR ABNORMAL [None]
